FAERS Safety Report 8336145-3 (Version None)
Quarter: 2012Q1

REPORT INFORMATION
  Report Type: 
  Country: None (occurrence: None)
  Receive Date: 20120329
  Receipt Date: 20090129
  Transmission Date: 20120608
  Serious: Yes (Other)
  Sender: FDA-Public Use
  Company Number: PHEH2009US01289

PATIENT
  Sex: Male

DRUGS (3)
  1. EXELON [Suspect]
     Dosage: 4.6 MG, TRANSDERMAL 9.5 MG
     Route: 062
  2. NAMENDA [Concomitant]
  3. ARICEPT [Concomitant]

REACTIONS (3)
  - MALAISE [None]
  - RETCHING [None]
  - HYPERTENSION [None]
